FAERS Safety Report 17945598 (Version 1)
Quarter: 2020Q2

REPORT INFORMATION
  Report Type: Report from Study
  Country: MX (occurrence: MX)
  Receive Date: 20200625
  Receipt Date: 20200625
  Transmission Date: 20200714
  Serious: Yes (Hospitalization)
  Sender: FDA-Public Use
  Company Number: MX-JNJFOC-20200241746

PATIENT
  Age: 46 Year
  Sex: Male
  Weight: 140 kg

DRUGS (3)
  1. SIMPONI [Suspect]
     Active Substance: GOLIMUMAB
     Indication: RHEUMATOID ARTHRITIS
     Route: 058
     Dates: start: 20150901
  2. LYRICA [Concomitant]
     Active Substance: PREGABALIN
  3. CYMBALTA [Concomitant]
     Active Substance: DULOXETINE HYDROCHLORIDE

REACTIONS (6)
  - Joint stiffness [Unknown]
  - Aortic aneurysm [Unknown]
  - Conjunctivitis [Unknown]
  - Hypoaesthesia [Unknown]
  - Arthralgia [Unknown]
  - Fibromyalgia [Unknown]

NARRATIVE: CASE EVENT DATE: 201909
